FAERS Safety Report 23150903 (Version 1)
Quarter: 2023Q4

REPORT INFORMATION
  Report Type: Spontaneous
  Country: US (occurrence: US)
  Receive Date: 20231106
  Receipt Date: 20231106
  Transmission Date: 20240109
  Serious: No
  Sender: FDA-Public Use
  Company Number: US-009507513-2310USA012661

PATIENT
  Sex: Female

DRUGS (1)
  1. DIFICID [Suspect]
     Active Substance: FIDAXOMICIN
     Dosage: 200 MILLIGRAM
     Route: 048
     Dates: start: 20231020, end: 20231029

REACTIONS (2)
  - Facial pain [Unknown]
  - Product use issue [Unknown]

NARRATIVE: CASE EVENT DATE: 20231024
